FAERS Safety Report 6153030-6 (Version None)
Quarter: 2009Q2

REPORT INFORMATION
  Report Type: 
  Country: None (occurrence: None)
  Receive Date: 20090413
  Receipt Date: 20090407
  Transmission Date: 20091009
  Serious: Yes (Death, Hospitalization)
  Sender: FDA-Public Use
  Company Number: B0568895A

PATIENT
  Sex: Female

DRUGS (4)
  1. ONDANSETRON HCL [Suspect]
     Indication: DRUG USE FOR UNKNOWN INDICATION
     Route: 048
     Dates: start: 20090203, end: 20090207
  2. BELUSTINE [Suspect]
     Indication: CHEMOTHERAPY
     Dosage: 200MG PER DAY
     Route: 048
     Dates: start: 20090203, end: 20090203
  3. VINCRISTINE [Suspect]
     Indication: CHEMOTHERAPY
     Dosage: 1.5MG PER DAY
     Route: 042
     Dates: start: 20090210, end: 20090210
  4. NATULAN [Suspect]
     Indication: CHEMOTHERAPY
     Dosage: 100MG CYCLIC
     Route: 048
     Dates: start: 20090210, end: 20090212

REACTIONS (11)
  - ABDOMINAL DISTENSION [None]
  - ABDOMINAL PAIN [None]
  - ALTERED STATE OF CONSCIOUSNESS [None]
  - CHOLESTASIS [None]
  - CYTOLYTIC HEPATITIS [None]
  - DIARRHOEA [None]
  - HEPATITIS ACUTE [None]
  - HYPOTENSION [None]
  - RALES [None]
  - RENAL FAILURE [None]
  - THROMBOCYTOPENIA [None]
